FAERS Safety Report 8188174-0 (Version None)
Quarter: 2012Q1

REPORT INFORMATION
  Report Type: 
  Country: None (occurrence: None)
  Receive Date: 20120306
  Receipt Date: 20120229
  Transmission Date: 20120608
  Serious: Yes (Hospitalization, Disabling)
  Sender: FDA-Public Use
  Company Number: US-PFIZER INC-2012028194

PATIENT
  Sex: Male

DRUGS (1)
  1. CELEBREX [Suspect]
     Dosage: UNK (200 1 DAILY)

REACTIONS (5)
  - THROMBOSIS [None]
  - CATARACT [None]
  - RESPIRATORY DISORDER [None]
  - CARDIAC DISORDER [None]
  - IMPAIRED WORK ABILITY [None]
